FAERS Safety Report 17810424 (Version 1)
Quarter: 2020Q2

REPORT INFORMATION
  Report Type: Spontaneous
  Country: US (occurrence: US)
  Receive Date: 20200521
  Receipt Date: 20200521
  Transmission Date: 20200714
  Serious: Yes (Hospitalization, Other)
  Sender: FDA-Public Use
  Company Number: US-ACCORD-180288

PATIENT
  Age: 13 Year
  Sex: Male

DRUGS (4)
  1. DEXAMFETAMINE [Interacting]
     Active Substance: DEXTROAMPHETAMINE
     Indication: ATTENTION DEFICIT HYPERACTIVITY DISORDER
     Dosage: FOR SEVERAL MONTHS
  2. QUETIAPINE. [Suspect]
     Active Substance: QUETIAPINE
     Indication: ACUTE PSYCHOSIS
  3. RISPERIDONE. [Interacting]
     Active Substance: RISPERIDONE
     Indication: ACUTE PSYCHOSIS
     Dosage: CROSS-TAPER
  4. OLANZAPINE. [Interacting]
     Active Substance: OLANZAPINE
     Indication: AGITATION
     Dosage: 5MG ODT

REACTIONS (2)
  - Oculogyric crisis [Recovered/Resolved]
  - Drug interaction [Unknown]
